FAERS Safety Report 19709728 (Version 2)
Quarter: 2021Q3

REPORT INFORMATION
  Report Type: Spontaneous
  Country: US (occurrence: US)
  Receive Date: 20210817
  Receipt Date: 20210903
  Transmission Date: 20211014
  Serious: Yes (Death, Hospitalization)
  Sender: FDA-Public Use
  Company Number: US-GW PHARMA-202108USGW03867

PATIENT

DRUGS (8)
  1. EPIDIOLEX [Suspect]
     Active Substance: CANNABIDIOL
     Indication: EPILEPSY
     Dosage: 260 MILLIGRAM, BID, 20 MG/KG/QD
     Dates: start: 20190905
  2. CLOBAZAM. [Concomitant]
     Active Substance: CLOBAZAM
     Indication: EPILEPSY
     Dosage: 5 MILLIGRAM, BID
     Route: 065
     Dates: end: 20210730
  3. PHENOBARB [PHENOBARBITAL] [Concomitant]
     Indication: LENNOX-GASTAUT SYNDROME
  4. CLOBAZAM. [Concomitant]
     Active Substance: CLOBAZAM
     Indication: LENNOX-GASTAUT SYNDROME
     Dosage: 6.25 MILLIGRAM, BID
     Dates: start: 20210730
  5. PHENOBARB [PHENOBARBITAL] [Concomitant]
     Indication: EPILEPSY
     Dosage: 50 MILLIGRAM, BID
  6. DIAZEPAM. [Concomitant]
     Active Substance: DIAZEPAM
     Indication: SEIZURE CLUSTER
  7. DIAZEPAM. [Concomitant]
     Active Substance: DIAZEPAM
     Indication: SEIZURE
     Dosage: 7.5 MILLIGRAM, PRN
  8. EPIDIOLEX [Suspect]
     Active Substance: CANNABIDIOL
     Indication: LENNOX-GASTAUT SYNDROME

REACTIONS (6)
  - Urosepsis [Unknown]
  - Seizure [Not Recovered/Not Resolved]
  - Respiratory arrest [Fatal]
  - Pyrexia [Unknown]
  - Acute respiratory failure [Unknown]
  - Urine abnormality [Unknown]

NARRATIVE: CASE EVENT DATE: 202107
